FAERS Safety Report 18802323 (Version 2)
Quarter: 2021Q1

REPORT INFORMATION
  Report Type: Report from Study
  Country: None (occurrence: IT)
  Receive Date: 20210128
  Receipt Date: 20210213
  Transmission Date: 20210419
  Serious: Yes (Death, Hospitalization)
  Sender: FDA-Public Use
  Company Number: IT-ABBVIE-21K-083-3750222-00

PATIENT
  Age: 83 Year
  Sex: Male

DRUGS (2)
  1. DUODOPA [Suspect]
     Active Substance: CARBIDOPA\LEVODOPA
     Indication: PARKINSON^S DISEASE
     Dosage: PUMP SETTING: MD: 0+3; CR: 5,2 (12H), 4,2 (12H); ED: 1,5,?20 MG/ML 5 MG/ML
     Route: 050
     Dates: start: 20160628
  2. DUODOPA [Suspect]
     Active Substance: CARBIDOPA\LEVODOPA

REACTIONS (2)
  - Infection [Fatal]
  - Cardiac disorder [Unknown]

NARRATIVE: CASE EVENT DATE: 202101
